FAERS Safety Report 8382083-X (Version None)
Quarter: 2012Q2

REPORT INFORMATION
  Report Type: 
  Country: None (occurrence: None)
  Receive Date: 20120523
  Receipt Date: 20120523
  Transmission Date: 20120825
  Serious: Yes (Hospitalization)
  Sender: FDA-Public Use
  Company Number: None

PATIENT
  Age: 33 Year
  Sex: Female

DRUGS (2)
  1. RIBAVIRIN [Suspect]
     Indication: HEPATITIS C
     Dosage: 600 MG MORNING/EVENING PO
     Route: 048
     Dates: start: 20120424, end: 20120522
  2. INCIVEK [Suspect]
     Indication: HEPATITIS C
     Dosage: 375 MG X 2 THREE TIMES DAILY PO
     Route: 048
     Dates: start: 20120424, end: 20120522

REACTIONS (6)
  - INSOMNIA [None]
  - OROPHARYNGEAL PAIN [None]
  - PRURITUS [None]
  - WHITE BLOOD CELL COUNT DECREASED [None]
  - DIARRHOEA [None]
  - RASH [None]
